FAERS Safety Report 4874104-3 (Version None)
Quarter: 2005Q4

REPORT INFORMATION
  Report Type: 
  Country: None (occurrence: None)
  Receive Date: 20051201
  Receipt Date: 20050808
  Transmission Date: 20060501
  Serious: No
  Sender: FDA-Public Use
  Company Number: 2005PV000918

PATIENT
  Age: 61 Year
  Sex: Male
  Weight: 124.7392 kg

DRUGS (8)
  1. BYETTA [Suspect]
     Indication: DIABETES MELLITUS NON-INSULIN-DEPENDENT
     Dosage: 10 MCG; BID; SC
     Route: 058
     Dates: start: 20050701
  2. GLUCOPHAGE [Concomitant]
  3. AMARYL [Concomitant]
  4. PRAVACHOL [Concomitant]
  5. NORVASC [Concomitant]
  6. GLYSET [Concomitant]
  7. ACTOS [Concomitant]
  8. ALTACE [Concomitant]

REACTIONS (2)
  - DEVICE FAILURE [None]
  - INJECTION SITE PAIN [None]
